FAERS Safety Report 9105525 (Version 1)
Quarter: 2013Q1

REPORT INFORMATION
  Report Type: Spontaneous
  Country: SE (occurrence: SE)
  Receive Date: 20130220
  Receipt Date: 20130220
  Transmission Date: 20140127
  Serious: Yes (Hospitalization)
  Sender: FDA-Public Use
  Company Number: US-ASTRAZENECA-2013SE09894

PATIENT
  Age: 81 Year
  Sex: Male
  Weight: 72.1 kg

DRUGS (11)
  1. CANDESARTAN [Suspect]
     Indication: CARDIAC FAILURE
     Route: 048
     Dates: start: 20070327
  2. CANDESARTAN [Suspect]
     Indication: AORTIC ANEURYSM
     Route: 048
     Dates: start: 20070327
  3. PLACEBO [Suspect]
     Indication: CARDIAC FAILURE CHRONIC
     Dosage: DAILY
     Route: 048
     Dates: start: 20070424, end: 20070525
  4. PLACEBO [Suspect]
     Indication: CARDIAC FAILURE CHRONIC
     Dosage: DAILY
     Route: 048
     Dates: start: 20070526, end: 20100928
  5. ASA [Concomitant]
     Dates: start: 1986
  6. PRAVASTATIN [Concomitant]
     Dates: start: 2000
  7. ISODUR [Concomitant]
     Dates: start: 2000
  8. OMEPRAZOL [Concomitant]
     Dates: start: 2003
  9. ARTROX [Concomitant]
     Dates: start: 2006
  10. METOPROLOL [Concomitant]
     Dates: start: 20070327
  11. PERSANTIN [Concomitant]
     Dates: start: 20090113

REACTIONS (3)
  - Syncope [Recovered/Resolved]
  - Hypotension [Unknown]
  - Intentional drug misuse [Unknown]
